FAERS Safety Report 16764867 (Version 2)
Quarter: 2019Q3

REPORT INFORMATION
  Report Type: Spontaneous
  Country: GB (occurrence: GB)
  Receive Date: 20190903
  Receipt Date: 20190905
  Transmission Date: 20191005
  Serious: Yes (Other)
  Sender: FDA-Public Use
  Company Number: GB-AUROBINDO-AUR-APL-2019-057662

PATIENT

DRUGS (24)
  1. GABAPENTIN. [Concomitant]
     Active Substance: GABAPENTIN
     Indication: SPINAL OSTEOARTHRITIS
     Dosage: 900 MILLIGRAM, ONCE A DAY
     Route: 048
     Dates: start: 201707, end: 201808
  2. LANSOPRAZOLE. [Concomitant]
     Active Substance: LANSOPRAZOLE
     Indication: GASTROINTESTINAL DISORDER THERAPY
     Dosage: 15 MILLIGRAM, ONCE A DAY
     Route: 048
     Dates: start: 201708
  3. BORTEZOMIB. [Suspect]
     Active Substance: BORTEZOMIB
     Indication: PLASMA CELL MYELOMA IN REMISSION
     Dosage: UNK
     Route: 058
     Dates: start: 20170801
  4. DOMPERIDONE [Concomitant]
     Active Substance: DOMPERIDONE
     Dosage: 30 MILLIGRAM, ONCE A DAY
     Route: 048
     Dates: start: 20180801, end: 20180804
  5. CASSIA ACUTIFOLIA [Concomitant]
     Indication: CONSTIPATION
     Dosage: 7.5 MILLIGRAM
     Route: 048
     Dates: start: 201708
  6. FUROSEMIDE. [Concomitant]
     Active Substance: FUROSEMIDE
     Indication: JOINT SWELLING
     Dosage: 40 MILLIGRAM, ONCE A DAY
     Route: 048
     Dates: start: 20180730
  7. GABAPENTIN. [Concomitant]
     Active Substance: GABAPENTIN
     Dosage: 1800 MILLIGRAM, ONCE A DAY
     Route: 048
     Dates: start: 201808
  8. ADCAL D3 [Concomitant]
     Active Substance: CALCIUM CARBONATE\CHOLECALCIFEROL
     Indication: INTERVERTEBRAL DISC DEGENERATION
     Dosage: 1 DOSAGE FORM, ONCE A DAY
     Route: 048
  9. PARACETAMOL [Concomitant]
     Active Substance: ACETAMINOPHEN
     Indication: SPINAL OSTEOARTHRITIS
     Dosage: 1 GRAM,AS NECESSARY
     Route: 048
     Dates: start: 201707
  10. FOLIC ACID. [Concomitant]
     Active Substance: FOLIC ACID
     Indication: BLOOD FOLATE DECREASED
     Dosage: 5 MILLIGRAM, ONCE A DAY
     Route: 048
     Dates: start: 20190118
  11. PARACETAMOL [Concomitant]
     Active Substance: ACETAMINOPHEN
     Indication: MUSCULOSKELETAL CHEST PAIN
  12. DOMPERIDONE [Concomitant]
     Active Substance: DOMPERIDONE
     Dosage: 10 MILLIGRAM, ONCE A DAY
     Route: 048
     Dates: start: 20180709, end: 20180709
  13. HYDROXOCOBALAMIN [Concomitant]
     Active Substance: HYDROXOCOBALAMIN
     Indication: VITAMIN B12 DEFICIENCY
     Dosage: 1 MILLIGRAM,3 MONTH
     Route: 030
     Dates: start: 20190118
  14. FERROUS SULFATE. [Concomitant]
     Active Substance: FERROUS SULFATE
     Indication: HAEMOGLOBIN DECREASED
     Dosage: 600 MILLIGRAM, ONCE A DAY
     Route: 048
     Dates: start: 201902
  15. MELPHALAN. [Suspect]
     Active Substance: MELPHALAN
     Indication: PLASMA CELL MYELOMA IN REMISSION
     Dosage: UNK
     Route: 065
     Dates: start: 20170801
  16. DOMPERIDONE [Concomitant]
     Active Substance: DOMPERIDONE
     Indication: NAUSEA
     Dosage: 30 MILLIGRAM, ONCE A DAY
     Route: 048
     Dates: start: 20180703, end: 20180706
  17. DOMPERIDONE [Concomitant]
     Active Substance: DOMPERIDONE
     Dosage: 10 MILLIGRAM, ONCE A DAY
     Route: 048
     Dates: start: 20180808
  18. LONGTEC [Concomitant]
     Active Substance: OXYCODONE HYDROCHLORIDE
     Indication: BACK PAIN
     Dosage: 40 MILLIGRAM, ONCE A DAY
     Route: 048
     Dates: start: 201707
  19. ZOMETA [Concomitant]
     Active Substance: ZOLEDRONIC ACID
     Indication: PRODUCT USED FOR UNKNOWN INDICATION
     Dosage: 4 MILLIGRAM EVERY 8 WEEK
     Route: 042
     Dates: start: 2017
  20. PREDNISOLONE. [Suspect]
     Active Substance: PREDNISOLONE
     Indication: PLASMA CELL MYELOMA IN REMISSION
     Dosage: UNK
     Route: 065
     Dates: start: 20170801
  21. ACYCLOVIR. [Concomitant]
     Active Substance: ACYCLOVIR
     Indication: ANTIVIRAL PROPHYLAXIS
     Dosage: 800 MILLIGRAM, ONCE A DAY
     Route: 048
     Dates: start: 20180703
  22. FEXOFENADINE [Concomitant]
     Active Substance: FEXOFENADINE HYDROCHLORIDE
     Indication: ALLERGY PROPHYLAXIS
     Dosage: 1 UNK,ONCE A DAY
     Route: 048
     Dates: start: 201709
  23. ASPRIN [Concomitant]
     Active Substance: ASPIRIN
     Indication: MUSCULOSKELETAL CHEST PAIN
     Dosage: 75 MILLIGRAM, ONCE A DAY
     Route: 048
     Dates: start: 20180703
  24. COSMOCOL [Concomitant]
     Indication: CONSTIPATION
     Dosage: AS NECESSARY,1-2 SACHET AS REQUIRED
     Route: 048
     Dates: start: 201708

REACTIONS (1)
  - Oesophageal adenocarcinoma [Not Recovered/Not Resolved]
